FAERS Safety Report 5170597-5 (Version None)
Quarter: 2006Q4

REPORT INFORMATION
  Report Type: 
  Country: None (occurrence: None)
  Receive Date: 20061205
  Receipt Date: 20060630
  Transmission Date: 20070319
  Serious: Yes (Life-Threatening, Hospitalization)
  Sender: FDA-Public Use
  Company Number: CZ-2006-037213

PATIENT
  Age: 70 Year
  Sex: Female

DRUGS (5)
  1. ULTRAVIST (PHARMACY BULK) [Suspect]
     Indication: ARTERIOGRAM CORONARY
     Dosage: 100 ML, 1 DOSE, INJECTION
  2. LITHIUM CARBONATE [Suspect]
     Indication: AFFECTIVE DISORDER
     Dosage: 500 MG, 2X/DAY,
  3. ANOPYRIN (ACETYLSALICYLIC ACID) [Concomitant]
  4. TENORMIN [Concomitant]
  5. GOPTEN (TRANDOLAPRIL) [Concomitant]

REACTIONS (16)
  - APHASIA [None]
  - BLOOD AMYLASE INCREASED [None]
  - BLOOD CREATININE INCREASED [None]
  - CEREBRAL ATROPHY [None]
  - COMA [None]
  - DISORIENTATION [None]
  - HEMIPARESIS [None]
  - HYPOKALAEMIA [None]
  - HYPOTENSION [None]
  - LEUKOCYTOSIS [None]
  - LOSS OF CONSCIOUSNESS [None]
  - POLYURIA [None]
  - PROTHROMBIN TIME PROLONGED [None]
  - RENAL FAILURE [None]
  - SINUS BRADYCARDIA [None]
  - THERAPEUTIC AGENT TOXICITY [None]
